FAERS Safety Report 21824806 (Version 1)
Quarter: 2023Q1

REPORT INFORMATION
  Report Type: Spontaneous
  Country: None (occurrence: GB)
  Receive Date: 20230105
  Receipt Date: 20230105
  Transmission Date: 20230418
  Serious: Yes (Hospitalization)
  Sender: FDA-Public Use
  Company Number: GB-B.Braun Medical Inc.-2136459

PATIENT
  Age: 44 Year
  Sex: Female
  Weight: 59.3 kg

DRUGS (3)
  1. SODIUM CHLORIDE [Suspect]
     Active Substance: SODIUM CHLORIDE
  2. LUTATHERA [Suspect]
     Active Substance: LUTETIUM OXODOTREOTIDE LU-177
  3. ONDANSETRON [Suspect]
     Active Substance: ONDANSETRON

REACTIONS (7)
  - Abdominal pain [None]
  - Pyrexia [None]
  - Jaundice [None]
  - Hepatic pain [None]
  - Neutrophil count decreased [None]
  - Neutropenic sepsis [None]
  - Abdominal pain upper [None]
